FAERS Safety Report 7288751-5 (Version None)
Quarter: 2011Q1

REPORT INFORMATION
  Report Type: 
  Country: None (occurrence: None)
  Receive Date: 20110211
  Receipt Date: 20110209
  Transmission Date: 20110831
  Serious: Yes (Death, Other)
  Sender: FDA-Public Use
  Company Number: PHHO2011MX01182

PATIENT
  Sex: Male
  Weight: 48 kg

DRUGS (6)
  1. STI571/CGP57148B [Suspect]
     Indication: GASTROINTESTINAL STROMAL TUMOUR
     Dosage: 400 MG, BID
     Route: 048
  2. OMEPRAZOLE [Concomitant]
  3. STI571/CGP57148B [Suspect]
     Dosage: 400 MG, QD
     Route: 048
  4. METOCLOPRAMIDE HCL [Concomitant]
     Indication: PAIN
  5. PARACETAMOL [Concomitant]
     Indication: PAIN
  6. FUROSEMIDE [Concomitant]
     Indication: OEDEMA

REACTIONS (5)
  - GASTROINTESTINAL HAEMORRHAGE [None]
  - CARDIAC FAILURE [None]
  - PERFORMANCE STATUS DECREASED [None]
  - DISEASE PROGRESSION [None]
  - ENTEROCUTANEOUS FISTULA [None]
